FAERS Safety Report 5402139-0 (Version None)
Quarter: 2007Q3

REPORT INFORMATION
  Report Type: 
  Country: None (occurrence: None)
  Receive Date: 20070801
  Receipt Date: 20070725
  Transmission Date: 20080115
  Serious: Yes (Life-Threatening, Hospitalization, Disabling, Other)
  Sender: FDA-Public Use
  Company Number: GB-ELI_LILLY_AND_COMPANY-GB200707005916

PATIENT
  Age: 69 Year
  Sex: Female

DRUGS (7)
  1. ZYPREXA [Suspect]
     Dosage: UNK, UNK
     Route: 048
     Dates: start: 20070101
  2. AMLODIPINE [Concomitant]
     Dosage: 10 MG, DAILY (1/D)
     Route: 048
  3. BENDROFLUMETHIAZIDE [Concomitant]
     Dosage: 2.5 MG, DAILY (1/D)
     Route: 048
  4. ENALAPRIL MALEATE [Concomitant]
     Dosage: 5 MG, DAILY (1/D)
     Route: 048
  5. SALBUTAMOL [Concomitant]
     Dosage: 200 UG, 2/D
     Route: 055
     Dates: start: 20040101
  6. SERETIDE [Concomitant]
     Dosage: 1 D/F, 2/D
     Route: 055
     Dates: start: 20040101
  7. TIOTROPIUM BROMIDE [Concomitant]
     Dosage: 18 UG, UNK
     Route: 055
     Dates: start: 20040101

REACTIONS (1)
  - RESPIRATORY FAILURE [None]
